FAERS Safety Report 5733007-2 (Version None)
Quarter: 2008Q2

REPORT INFORMATION
  Report Type: 
  Country: None (occurrence: None)
  Receive Date: 20080509
  Receipt Date: 20080429
  Transmission Date: 20081010
  Serious: Yes (Hospitalization)
  Sender: FDA-Public Use
  Company Number: US-JNJFOC-20080106548

PATIENT
  Sex: Female
  Weight: 66.68 kg

DRUGS (6)
  1. TOPAMAX [Suspect]
     Route: 048
  2. TOPAMAX [Suspect]
     Indication: MIGRAINE PROPHYLAXIS
     Route: 048
  3. EXCEDRIN (MIGRAINE) [Concomitant]
     Indication: HEADACHE
  4. ALLEGRA [Concomitant]
     Indication: HYPERSENSITIVITY
     Route: 065
  5. YASMIN [Concomitant]
     Indication: CONTRACEPTION
     Route: 048
  6. ALLERGY SHOTS [Concomitant]
     Indication: MULTIPLE ALLERGIES

REACTIONS (3)
  - ANGLE CLOSURE GLAUCOMA [None]
  - BLINDNESS [None]
  - EYE SWELLING [None]
